FAERS Safety Report 18396477 (Version 1)
Quarter: 2020Q4

REPORT INFORMATION
  Report Type: Spontaneous
  Country: US (occurrence: US)
  Receive Date: 20201019
  Receipt Date: 20201019
  Transmission Date: 20210114
  Serious: No
  Sender: FDA-Public Use
  Company Number: NVSC2020US276085

PATIENT
  Age: 40 Year
  Sex: Female

DRUGS (1)
  1. GLATOPA [Suspect]
     Active Substance: GLATIRAMER ACETATE
     Indication: MULTIPLE SCLEROSIS
     Dosage: 40 MG, TID
     Route: 058
     Dates: start: 20200930

REACTIONS (4)
  - Injection site pain [Unknown]
  - Nervousness [Unknown]
  - Panic attack [Unknown]
  - Palpitations [Unknown]

NARRATIVE: CASE EVENT DATE: 20200930
